FAERS Safety Report 6212588-9 (Version None)
Quarter: 2009Q2

REPORT INFORMATION
  Report Type: 
  Country: None (occurrence: None)
  Receive Date: 20090603
  Receipt Date: 20090526
  Transmission Date: 20091009
  Serious: Yes (Hospitalization, Other)
  Sender: FDA-Public Use
  Company Number: US-BAYER-200918743NA

PATIENT
  Age: 42 Year
  Sex: Female
  Weight: 54 kg

DRUGS (1)
  1. YAZ [Suspect]
     Indication: DRUG USE FOR UNKNOWN INDICATION
     Route: 048
     Dates: start: 20080818, end: 20090402

REACTIONS (1)
  - PULMONARY EMBOLISM [None]
